FAERS Safety Report 8397895-6 (Version None)
Quarter: 2012Q2

REPORT INFORMATION
  Report Type: 
  Country: None (occurrence: None)
  Receive Date: 20120531
  Receipt Date: 20120529
  Transmission Date: 20120825
  Serious: Yes (Hospitalization)
  Sender: FDA-Public Use
  Company Number: PHHO2010FR04369

PATIENT
  Sex: Male
  Weight: 62 kg

DRUGS (3)
  1. MYCOPHENOLIC ACID [Suspect]
     Indication: RENAL TRANSPLANT
     Dosage: UNK
  2. NEORAL [Suspect]
     Indication: RENAL TRANSPLANT
     Dosage: UNK
  3. BACTRIM [Concomitant]

REACTIONS (1)
  - FEBRILE NEUTROPENIA [None]
